FAERS Safety Report 5872779-3 (Version None)
Quarter: 2008Q3

REPORT INFORMATION
  Report Type: 
  Country: None (occurrence: None)
  Receive Date: 20080903
  Receipt Date: 20080821
  Transmission Date: 20090109
  Serious: Yes (Other)
  Sender: FDA-Public Use
  Company Number: 230681K07USA

PATIENT
  Age: 52 Year
  Sex: Female
  Weight: 63.5036 kg

DRUGS (2)
  1. REBIF [Suspect]
     Indication: MULTIPLE SCLEROSIS
     Dosage: 44 MCG, 3 IN 1 WEEKS, SUBCUTANEOUS
     Route: 058
     Dates: start: 20060707
  2. AMBIEN [Concomitant]

REACTIONS (4)
  - CHOLELITHIASIS [None]
  - NEPHROLITHIASIS [None]
  - SPLENIC ARTERY ANEURYSM [None]
  - SPLENOMEGALY [None]
